FAERS Safety Report 24555671 (Version 2)
Quarter: 2025Q2

REPORT INFORMATION
  Report Type: Spontaneous
  Country: AU (occurrence: AU)
  Receive Date: 20241028
  Receipt Date: 20250408
  Transmission Date: 20250716
  Serious: Yes (Other)
  Sender: MYLAN
  Company Number: AU-MYLANLABS-2024M1090132

PATIENT
  Sex: Female

DRUGS (2)
  1. CLOZARIL [Suspect]
     Active Substance: CLOZAPINE
     Indication: Schizophrenia
  2. CLOZARIL [Suspect]
     Active Substance: CLOZAPINE
     Dosage: 700 MILLIGRAM, QD

REACTIONS (5)
  - Chronic myeloid leukaemia [Unknown]
  - Antipsychotic drug level decreased [Unknown]
  - Antipsychotic drug level increased [Unknown]
  - General physical health deterioration [Unknown]
  - Off label use [Unknown]
